FAERS Safety Report 24592352 (Version 1)
Quarter: 2024Q4

REPORT INFORMATION
  Report Type: Spontaneous
  Country: AU (occurrence: AU)
  Receive Date: 20241108
  Receipt Date: 20241108
  Transmission Date: 20250115
  Serious: Yes (Other)
  Sender: CSL BEHRING
  Company Number: AU-BEH-2024183553

PATIENT
  Age: 87 Year
  Sex: Male
  Weight: 72 kg

DRUGS (2)
  1. HUMAN IMMUNOGLOBULIN G [Suspect]
     Active Substance: HUMAN IMMUNOGLOBULIN G
     Indication: Guillain-Barre syndrome
     Dosage: 30 G
     Route: 042
     Dates: start: 20241019
  2. HUMAN IMMUNOGLOBULIN G [Suspect]
     Active Substance: HUMAN IMMUNOGLOBULIN G
     Dosage: 30 G
     Route: 042
     Dates: start: 20241019

REACTIONS (4)
  - Coma scale abnormal [Recovered/Resolved]
  - Pneumonia [Unknown]
  - Delirium [Unknown]
  - Constipation [Unknown]

NARRATIVE: CASE EVENT DATE: 20241019
